FAERS Safety Report 12462165 (Version 2)
Quarter: 2016Q2

REPORT INFORMATION
  Report Type: Spontaneous
  Country: US (occurrence: US)
  Receive Date: 20160613
  Receipt Date: 20160617
  Transmission Date: 20160815
  Serious: Yes (Other)
  Sender: FDA-Public Use
  Company Number: US-BAXALTA-2016BLT004096

PATIENT
  Age: 38 Year
  Sex: Female

DRUGS (2)
  1. HYQVIA [Suspect]
     Active Substance: HUMAN IMMUNOGLOBULIN G\HYALURONIDASE RECOMBINANT HUMAN
     Dosage: 2ND RAMP UP DOSE
     Route: 065
     Dates: start: 20160501, end: 20160501
  2. HYQVIA [Suspect]
     Active Substance: HUMAN IMMUNOGLOBULIN G\HYALURONIDASE RECOMBINANT HUMAN
     Indication: PRODUCT USED FOR UNKNOWN INDICATION
     Dosage: 1ST RAMP UP DOSE
     Route: 065
     Dates: start: 20160425, end: 20160425

REACTIONS (4)
  - Abdominal pain [Recovered/Resolved]
  - Muscular weakness [Recovered/Resolved]
  - Meningitis aseptic [Recovered/Resolved]
  - Fatigue [Recovered/Resolved]

NARRATIVE: CASE EVENT DATE: 20160425
